FAERS Safety Report 5607587-1 (Version None)
Quarter: 2008Q1

REPORT INFORMATION
  Report Type: 
  Country: None (occurrence: None)
  Receive Date: 20080128
  Receipt Date: 20080128
  Transmission Date: 20080703
  Serious: Yes (Life-Threatening, Hospitalization, Disabling, Congenital Anomaly, Other)
  Sender: FDA-Public Use
  Company Number: None

PATIENT
  Sex: Female
  Weight: 7.5 kg

DRUGS (4)
  1. PAXIL [Suspect]
     Indication: ANXIETY
     Dosage: DAILY
     Dates: start: 19980110, end: 19990131
  2. PAXIL [Suspect]
     Indication: DEPRESSION
     Dosage: DAILY
     Dates: start: 19980110, end: 19990131
  3. PAXIL [Suspect]
     Indication: OBSESSIVE-COMPULSIVE DISORDER
     Dosage: DAILY
     Dates: start: 19980110, end: 19990131
  4. PAXIL [Suspect]
     Indication: POST-TRAUMATIC STRESS DISORDER
     Dosage: DAILY
     Dates: start: 19980110, end: 19990131

REACTIONS (4)
  - CONGENITAL NEUROLOGICAL DISORDER [None]
  - DRUG EXPOSURE DURING PREGNANCY [None]
  - INFANTILE ASTHMA [None]
  - JAUNDICE NEONATAL [None]
